FAERS Safety Report 8206790-4 (Version None)
Quarter: 2012Q1

REPORT INFORMATION
  Report Type: 
  Country: None (occurrence: None)
  Receive Date: 20120227
  Receipt Date: 20111216
  Transmission Date: 20120608
  Serious: No
  Sender: FDA-Public Use
  Company Number: 341883

PATIENT
  Sex: Female

DRUGS (3)
  1. METFORMIN HCL [Suspect]
     Indication: TYPE 2 DIABETES MELLITUS
     Dosage: , ORAL
     Route: 048
  2. GLUCOTROL [Suspect]
     Indication: TYPE 2 DIABETES MELLITUS
     Dosage: , ORAL
     Route: 048
  3. VICTOZA [Suspect]
     Indication: TYPE 2 DIABETES MELLITUS
     Dosage: , SUBCUTANEOUS
     Route: 058

REACTIONS (1)
  - HYPOGLYCAEMIA [None]
